FAERS Safety Report 7773223-1 (Version None)
Quarter: 2011Q3

REPORT INFORMATION
  Report Type: 
  Country: None (occurrence: None)
  Receive Date: 20110922
  Receipt Date: 20110911
  Transmission Date: 20111222
  Serious: No
  Sender: FDA-Public Use
  Company Number: US-B.I. PHARMACEUTICALS,INC./RIDGEFIELD-2011-BP-21946BP

PATIENT
  Age: 84 Year
  Sex: Male

DRUGS (6)
  1. PRADAXA [Suspect]
     Indication: ATRIAL FIBRILLATION
     Dosage: 300 MG
     Route: 048
     Dates: start: 20110906
  2. LIPITOR [Concomitant]
     Dosage: 200 MG
     Route: 048
  3. PLAVIX [Concomitant]
     Indication: ATRIAL FIBRILLATION
     Dosage: 75 MG
     Route: 048
  4. BETAPACE [Concomitant]
     Indication: ATRIAL FIBRILLATION
     Dosage: 320 MG
     Route: 048
     Dates: start: 20110906
  5. TRAZODONE HYDROCHLORIDE [Concomitant]
     Indication: SLEEP DISORDER
     Dosage: 50 MG
     Route: 048
  6. DIOVAN [Concomitant]
     Dosage: 40 MG
     Route: 048

REACTIONS (2)
  - DYSPNOEA [None]
  - ASTHENIA [None]
